FAERS Safety Report 4362459-8 (Version None)
Quarter: 2004Q2

REPORT INFORMATION
  Report Type: 
  Country: None (occurrence: None)
  Receive Date: 20040521
  Receipt Date: 20040510
  Transmission Date: 20050107
  Serious: Yes (Other)
  Sender: FDA-Public Use
  Company Number: GB-GLAXOSMITHKLINE-B0332376A

PATIENT
  Age: 18 Year
  Sex: Female
  Weight: 76.3 kg

DRUGS (4)
  1. LAMICTAL [Suspect]
     Indication: COMPLEX PARTIAL SEIZURES
     Dosage: 250MG TWICE PER DAY
     Route: 048
     Dates: start: 20030515
  2. TEGRETOL [Concomitant]
     Indication: COMPLEX PARTIAL SEIZURES
     Dosage: 400MG PER DAY
     Route: 048
     Dates: start: 19960101
  3. PROPRANOLOL [Concomitant]
     Indication: HEADACHE
     Dosage: 40MG PER DAY
     Route: 048
     Dates: start: 20021101, end: 20030804
  4. CETIRIZINE HCL [Concomitant]
     Indication: RHINITIS ALLERGIC
     Dosage: 10MG PER DAY
     Route: 048
     Dates: start: 20030616, end: 20030804

REACTIONS (1)
  - PSORIASIS [None]
